FAERS Safety Report 9863265 (Version 1)
Quarter: 2014Q1

REPORT INFORMATION
  Report Type: Spontaneous
  Country: US (occurrence: US)
  Receive Date: 20140203
  Receipt Date: 20140203
  Transmission Date: 20141002
  Serious: No
  Sender: FDA-Public Use
  Company Number: US-TARO-2013P1019502

PATIENT
  Age: 50 Year
  Sex: Female
  Weight: 58.06 kg

DRUGS (1)
  1. NYSTATIN + TRIAMCINOLONE ACETONIDE CREAM USP [Suspect]
     Indication: FUNGAL INFECTION
     Route: 061
     Dates: start: 20130904, end: 20130908

REACTIONS (7)
  - Sneezing [Recovered/Resolved]
  - Local swelling [Recovering/Resolving]
  - Erythema [Recovering/Resolving]
  - Pruritus [Unknown]
  - Scar [Not Recovered/Not Resolved]
  - Bacterial infection [Recovering/Resolving]
  - Fungal infection [Recovering/Resolving]
